FAERS Safety Report 13093456 (Version 2)
Quarter: 2017Q1

REPORT INFORMATION
  Report Type: Spontaneous
  Country: GB (occurrence: GB)
  Receive Date: 20170106
  Receipt Date: 20170208
  Transmission Date: 20170428
  Serious: Yes (Disabling, Other)
  Sender: FDA-Public Use
  Company Number: GB-BAYER-2016-247577

PATIENT
  Age: 68 Year
  Sex: Female
  Weight: 71.66 kg

DRUGS (8)
  1. ASPIRIN. [Suspect]
     Active Substance: ASPIRIN
     Indication: ANGIOPATHY
     Dosage: 75 MG, UNK
     Route: 048
     Dates: start: 20161011, end: 20161031
  2. AMITRIPTYLINE [Concomitant]
     Active Substance: AMITRIPTYLINE
     Dosage: 70 MG, QD
  3. CITALOPRAM [Concomitant]
     Active Substance: CITALOPRAM HYDROBROMIDE
     Dosage: 20 MG, UNK
  4. VERAPAMIL [Concomitant]
     Active Substance: VERAPAMIL HYDROCHLORIDE
     Dosage: 80 MG, TID
  5. OMEPRAZOLE. [Concomitant]
     Active Substance: OMEPRAZOLE
     Dosage: 20 MG, UNK
  6. TOPIRAMATE. [Concomitant]
     Active Substance: TOPIRAMATE
     Dosage: 50 MG, BID
  7. GABAPENTIN. [Concomitant]
     Active Substance: GABAPENTIN
     Dosage: 600 MG, TID
  8. ATORVASTATIN [Suspect]
     Active Substance: ATORVASTATIN
     Indication: ANGIOPATHY
     Dosage: 20 MG, QD
     Route: 048
     Dates: start: 20161011, end: 20161031

REACTIONS (2)
  - Condition aggravated [Unknown]
  - Cluster headache [Recovered/Resolved]

NARRATIVE: CASE EVENT DATE: 20161018
